FAERS Safety Report 17702562 (Version 3)
Quarter: 2021Q2

REPORT INFORMATION
  Report Type: Spontaneous
  Country: CA (occurrence: CA)
  Receive Date: 20200423
  Receipt Date: 20210614
  Transmission Date: 20210716
  Serious: Yes (Other)
  Sender: FDA-Public Use
  Company Number: CA-SAMSUNG BIOEPIS-SB-2019-05821

PATIENT
  Age: 25 Year
  Sex: Male

DRUGS (7)
  1. PANTOLOC [Concomitant]
     Active Substance: PANTOPRAZOLE SODIUM
     Indication: PRODUCT USED FOR UNKNOWN INDICATION
     Dosage: UNKNOWN, ENTERIC COATED TABLET
     Route: 065
  2. CIPROFLOXACIN. [Concomitant]
     Active Substance: CIPROFLOXACIN
     Indication: PROPHYLAXIS
     Dosage: UNKNOWN
     Route: 065
  3. ZYPREXA [Concomitant]
     Active Substance: OLANZAPINE
     Indication: PRODUCT USED FOR UNKNOWN INDICATION
     Dosage: UNKNOWN
     Route: 065
  4. METRONIDAZOLE. [Concomitant]
     Active Substance: METRONIDAZOLE
     Indication: PROPHYLAXIS
     Dosage: UNKNOWN
     Route: 065
  5. ASACOL [Concomitant]
     Active Substance: MESALAMINE
     Indication: PRODUCT USED FOR UNKNOWN INDICATION
     Dosage: ENTERIC COATED TABLET
     Route: 065
  6. INFLIXIMAB [Suspect]
     Active Substance: INFLIXIMAB
     Indication: CROHN^S DISEASE
     Route: 042
  7. IRON [Concomitant]
     Active Substance: IRON
     Indication: PRODUCT USED FOR UNKNOWN INDICATION
     Dosage: UNKNOWN
     Route: 065

REACTIONS (17)
  - Mental disorder [Not Recovered/Not Resolved]
  - Angina pectoris [Not Recovered/Not Resolved]
  - Cough [Not Recovered/Not Resolved]
  - Inappropriate schedule of product administration [Not Recovered/Not Resolved]
  - Therapeutic product effect incomplete [Unknown]
  - Drug level decreased [Not Recovered/Not Resolved]
  - Intentional dose omission [Not Recovered/Not Resolved]
  - Anal abscess [Not Recovered/Not Resolved]
  - Rhinorrhoea [Not Recovered/Not Resolved]
  - Abscess bacterial [Not Recovered/Not Resolved]
  - Nasopharyngitis [Not Recovered/Not Resolved]
  - Off label use [Not Recovered/Not Resolved]
  - Fatigue [Not Recovered/Not Resolved]
  - Fistula [Not Recovered/Not Resolved]
  - Influenza [Recovered/Resolved]
  - Oropharyngeal pain [Not Recovered/Not Resolved]
  - Rectal fissure [Not Recovered/Not Resolved]
